FAERS Safety Report 8742941 (Version 2)
Quarter: 2012Q4

REPORT INFORMATION
  Report Type: Spontaneous
  Country: ES (occurrence: None)
  Receive Date: 20120807
  Receipt Date: 20120814
  Transmission Date: 20130627
  Serious: Yes (Other)
  Sender: FDA-Public Use
  Company Number: 2012AP002283

PATIENT
  Sex: Female

DRUGS (8)
  1. LEVOFLOXACIN [Suspect]
     Indication: PULMONARY TUBERCULOSIS
  2. LEVOFLOXACIN [Suspect]
     Indication: OFF LABEL USE
  3. ISONIAZID [Suspect]
     Indication: PULMONARY TUBERCULOSIS
  4. PYRAZINAMIDE [Suspect]
     Indication: PULMONARY TUBERCULOSIS
  5. ETHAMBUTOL HYDROCHLORIDE [Suspect]
     Indication: PULMONARY TUBERCULOSIS
  6. PREDNISOLONE [Concomitant]
  7. MYCOPHENOLATE MOFETIL (MYCOPHENOLATE MOFETIL) [Concomitant]
  8. CICLOSPIRIN (CICLOSPORIN) [Concomitant]

REACTIONS (5)
  - Hyperuricaemia [None]
  - Arthralgia [None]
  - Off label use [None]
  - Hepatitis [None]
  - Drug-induced liver injury [None]
